FAERS Safety Report 24938176 (Version 5)
Quarter: 2025Q2

REPORT INFORMATION
  Report Type: Spontaneous
  Country: FR (occurrence: FR)
  Receive Date: 20250206
  Receipt Date: 20250415
  Transmission Date: 20250717
  Serious: Yes (Other)
  Sender: RECORDATI
  Company Number: FR-ORPHANEU-2025000713

PATIENT
  Age: 82 Year
  Sex: Male

DRUGS (1)
  1. SYLVANT [Suspect]
     Active Substance: SILTUXIMAB
     Indication: Castleman^s disease
     Dosage: 700 MILLIGRAM, Q3W
     Route: 042
     Dates: end: 20250220

REACTIONS (1)
  - Bone marrow failure [Unknown]
